FAERS Safety Report 6331545-5 (Version None)
Quarter: 2009Q3

REPORT INFORMATION
  Report Type: 
  Country: None (occurrence: None)
  Receive Date: 20090827
  Receipt Date: 20090818
  Transmission Date: 20100115
  Serious: Yes (Death)
  Sender: FDA-Public Use
  Company Number: US-ROCHE-641040

PATIENT
  Sex: Female
  Weight: 81.6 kg

DRUGS (1)
  1. CAPECITABINE [Suspect]
     Indication: DRUG USE FOR UNKNOWN INDICATION
     Route: 048
     Dates: start: 20081101, end: 20090518

REACTIONS (2)
  - BREAST CANCER STAGE IV [None]
  - LUNG NEOPLASM MALIGNANT [None]
